FAERS Safety Report 21208696 (Version 1)
Quarter: 2022Q3

REPORT INFORMATION
  Report Type: Spontaneous
  Country: US (occurrence: None)
  Receive Date: 20220812
  Receipt Date: 20220812
  Transmission Date: 20221027
  Serious: Yes (Hospitalization)
  Sender: FDA-Public Use
  Company Number: None

PATIENT
  Age: 91 Year
  Sex: Female
  Weight: 57.15 kg

DRUGS (2)
  1. PAXLOVID [Suspect]
     Active Substance: NIRMATRELVIR\RITONAVIR
     Indication: COVID-19
     Dosage: 2 TPT - TOTAL TWICE A DAY ORAL?
     Route: 048
     Dates: start: 20220730, end: 20220802
  2. Trazodone (Desyrel) [Concomitant]
     Dates: start: 20120101, end: 20220804

REACTIONS (8)
  - Dizziness [None]
  - Abnormal dreams [None]
  - Sleep disorder [None]
  - Nausea [None]
  - Anxiety [None]
  - Aphasia [None]
  - Hemiparesis [None]
  - Haemorrhage intracranial [None]

NARRATIVE: CASE EVENT DATE: 20220802
